FAERS Safety Report 24173304 (Version 1)
Quarter: 2024Q3

REPORT INFORMATION
  Report Type: Spontaneous
  Country: US (occurrence: US)
  Receive Date: 20240805
  Receipt Date: 20240805
  Transmission Date: 20241017
  Serious: Yes (Hospitalization, Other)
  Sender: NOVO NORDISK
  Company Number: US-NOVOPROD-1260982

PATIENT
  Sex: Female

DRUGS (2)
  1. SEMAGLUTIDE [Suspect]
     Active Substance: SEMAGLUTIDE
     Indication: Weight control
     Dosage: UNK
     Route: 058
     Dates: end: 2023
  2. WEGOVY [Suspect]
     Active Substance: SEMAGLUTIDE
     Indication: Weight decreased

REACTIONS (3)
  - Coronary artery occlusion [Recovered/Resolved]
  - Tendon injury [Not Recovered/Not Resolved]
  - Counterfeit product administered [Recovered/Resolved]
